FAERS Safety Report 21010953 (Version 1)
Quarter: 2022Q2

REPORT INFORMATION
  Report Type: Spontaneous
  Country: US (occurrence: US)
  Receive Date: 20220627
  Receipt Date: 20220627
  Transmission Date: 20220720
  Serious: Yes (Life-Threatening, Hospitalization)
  Sender: FDA-Public Use
  Company Number: US-PFIZER INC-202200876603

PATIENT
  Age: 90 Year
  Sex: Male

DRUGS (2)
  1. VYNDAMAX [Suspect]
     Active Substance: TAFAMIDIS
     Indication: Cardiac amyloidosis
     Dosage: UNK
  2. CRESTOR [Concomitant]
     Active Substance: ROSUVASTATIN CALCIUM
     Indication: Blood cholesterol increased
     Dosage: 5 MG, DAILY

REACTIONS (7)
  - Coma [Not Recovered/Not Resolved]
  - Ammonia increased [Unknown]
  - Lethargy [Unknown]
  - Mental status changes [Not Recovered/Not Resolved]
  - Confusional state [Unknown]
  - Blood bilirubin increased [Unknown]
  - Hepatic failure [Unknown]
